FAERS Safety Report 8217957-3 (Version None)
Quarter: 2012Q1

REPORT INFORMATION
  Report Type: 
  Country: None (occurrence: None)
  Receive Date: 20120319
  Receipt Date: 20120312
  Transmission Date: 20120608
  Serious: Yes (Hospitalization)
  Sender: FDA-Public Use
  Company Number: DE-ABBOTT-12P-062-0914053-00

PATIENT
  Sex: Male
  Weight: 63 kg

DRUGS (5)
  1. KALETRA [Suspect]
     Indication: HIV INFECTION
     Dosage: 4 TABLET DAILY DOSE
     Route: 048
     Dates: start: 20110722, end: 20120208
  2. TRUVADA [Concomitant]
     Indication: HIV INFECTION
     Route: 048
     Dates: start: 20110722
  3. PSYCHOTROPIC DRUGS [Concomitant]
     Indication: PRODUCT USED FOR UNKNOWN INDICATION
  4. CITALOPRAM HYDROBROMIDE [Concomitant]
     Indication: SCHIZOPHRENIA, PARANOID TYPE
     Dosage: 20MG DAILY DOSE
  5. ARIPIPRAZOLE [Concomitant]
     Indication: SCHIZOPHRENIA, PARANOID TYPE
     Dosage: 10 MG DAILY DOSE

REACTIONS (5)
  - ERYSIPELAS [None]
  - ARTHRITIS REACTIVE [None]
  - CHLAMYDIAL INFECTION [None]
  - ARTHRITIS [None]
  - JOINT EFFUSION [None]
